FAERS Safety Report 9953112 (Version 2)
Quarter: 2014Q1

REPORT INFORMATION
  Report Type: Report from Study
  Country: US (occurrence: US)
  Receive Date: 20140304
  Receipt Date: 20140304
  Transmission Date: 20141002
  Serious: No
  Sender: FDA-Public Use
  Company Number: US-ABBVIE-13P-163-1067691-00

PATIENT
  Age: 47 Year
  Sex: Female

DRUGS (4)
  1. HUMIRA [Suspect]
     Indication: CROHN^S DISEASE
     Route: 058
     Dates: start: 2011, end: 201212
  2. HUMIRA [Suspect]
     Dosage: LOADING DOSE
     Route: 058
     Dates: start: 20130405
  3. LUNESTA [Concomitant]
     Indication: PRODUCT USED FOR UNKNOWN INDICATION
     Dosage: AT BEDTIME
  4. VENTOLIN [Concomitant]
     Indication: HYPERSENSITIVITY
     Dosage: EVERY DAY

REACTIONS (14)
  - Device malfunction [Not Recovered/Not Resolved]
  - Gastrointestinal haemorrhage [Not Recovered/Not Resolved]
  - Depression [Unknown]
  - Panic disorder [Unknown]
  - Lyme disease [Unknown]
  - Arthralgia [Unknown]
  - Joint stiffness [Unknown]
  - Overgrowth bacterial [Unknown]
  - Abdominal distension [Unknown]
  - Frequent bowel movements [Recovering/Resolving]
  - Haematochezia [Recovered/Resolved]
  - Mucous stools [Recovered/Resolved]
  - Dyspnoea [Unknown]
  - Wheezing [Unknown]
